FAERS Safety Report 20974588 (Version 11)
Quarter: 2023Q4

REPORT INFORMATION
  Report Type: Report from Study
  Country: CO (occurrence: CO)
  Receive Date: 20220617
  Receipt Date: 20231222
  Transmission Date: 20240109
  Serious: Yes (Life-Threatening, Hospitalization, Other)
  Sender: FDA-Public Use
  Company Number: CO-NOVARTISPH-NVSC2022CO136160

PATIENT
  Age: 13 Year
  Sex: Female

DRUGS (5)
  1. ELTROMBOPAG OLAMINE [Suspect]
     Active Substance: ELTROMBOPAG OLAMINE
     Indication: Immune thrombocytopenia
     Dosage: 25 MG, QD (2 YEARS AGO THE EXACT DATE NOT REPORTED)
     Route: 048
  2. ELTROMBOPAG OLAMINE [Suspect]
     Active Substance: ELTROMBOPAG OLAMINE
     Dosage: UNK
     Route: 048
  3. ELTROMBOPAG OLAMINE [Suspect]
     Active Substance: ELTROMBOPAG OLAMINE
     Dosage: QD (ONCE DAILY)
     Route: 048
  4. ELTROMBOPAG OLAMINE [Suspect]
     Active Substance: ELTROMBOPAG OLAMINE
     Dosage: 50 MG, QD
     Route: 048
     Dates: end: 202303
  5. ELTROMBOPAG OLAMINE [Suspect]
     Active Substance: ELTROMBOPAG OLAMINE
     Dosage: 25 MG, BID
     Route: 048
     Dates: start: 20220415, end: 20220415

REACTIONS (9)
  - Platelet count decreased [Not Recovered/Not Resolved]
  - Contusion [Unknown]
  - Vaginal haemorrhage [Unknown]
  - Petechiae [Unknown]
  - Decreased appetite [Unknown]
  - Weight decreased [Unknown]
  - Gingival bleeding [Recovered/Resolved]
  - Illness [Unknown]
  - Alopecia [Unknown]

NARRATIVE: CASE EVENT DATE: 20230701
